FAERS Safety Report 20575822 (Version 4)
Quarter: 2022Q3

REPORT INFORMATION
  Report Type: Report from Study
  Country: BR (occurrence: BR)
  Receive Date: 20220310
  Receipt Date: 20220630
  Transmission Date: 20221027
  Serious: Yes (Life-Threatening, Hospitalization, Other)
  Sender: FDA-Public Use
  Company Number: BR-NOVARTISPH-NVSC2021BR302503

PATIENT
  Sex: Female

DRUGS (15)
  1. KISQALI [Suspect]
     Active Substance: RIBOCICLIB
     Indication: Breast cancer
     Dosage: 3 DF, QD
     Route: 065
     Dates: start: 20210226
  2. KISQALI [Suspect]
     Active Substance: RIBOCICLIB
     Dosage: 3 DF, QD (DURING 21 DAYS AND PAUSE OF 7)
     Route: 065
     Dates: start: 20210226, end: 202107
  3. KISQALI [Suspect]
     Active Substance: RIBOCICLIB
     Dosage: UNK
     Route: 065
  4. KISQALI [Suspect]
     Active Substance: RIBOCICLIB
     Dosage: 3 DF
     Route: 065
  5. KISQALI [Suspect]
     Active Substance: RIBOCICLIB
     Dosage: 3 DOSAGE FORM, QD
     Route: 065
     Dates: start: 20210226
  6. KISQALI [Suspect]
     Active Substance: RIBOCICLIB
     Dosage: 3 DOSAGE FORM, QD
     Route: 065
  7. LETROZOLE [Suspect]
     Active Substance: LETROZOLE
     Indication: Product used for unknown indication
     Dosage: UNK
     Route: 065
  8. LETROZOLE [Concomitant]
     Active Substance: LETROZOLE
     Indication: Product used for unknown indication
     Dosage: UNK
     Route: 065
     Dates: start: 2018
  9. LETROZOLE [Concomitant]
     Active Substance: LETROZOLE
     Dosage: UNK
     Route: 065
     Dates: start: 202101
  10. PREDNISONE [Concomitant]
     Active Substance: PREDNISONE
     Indication: Hypersensitivity
     Dosage: 20 MG
     Route: 065
  11. PREDNISONE [Concomitant]
     Active Substance: PREDNISONE
     Indication: Dermatitis
     Dosage: 60 MG, QD
     Route: 065
  12. PREDNISONE [Concomitant]
     Active Substance: PREDNISONE
     Dosage: 10 MG
     Route: 065
  13. PREDNISONE [Concomitant]
     Active Substance: PREDNISONE
     Dosage: 5 MG, (IN USE)
     Route: 065
  14. VITAMIN D [Concomitant]
     Active Substance: VITAMIN D NOS
     Indication: Product used for unknown indication
     Dosage: IN USE
     Route: 065
  15. HYDROXYZINE HYDROCHLORIDE [Concomitant]
     Active Substance: HYDROXYZINE HYDROCHLORIDE
     Indication: Antiallergic therapy
     Route: 065

REACTIONS (37)
  - Pleural effusion [Unknown]
  - Metastasis [Unknown]
  - Device related infection [Unknown]
  - Breast inflammation [Recovering/Resolving]
  - Post procedural inflammation [Unknown]
  - Hypersensitivity [Recovering/Resolving]
  - Immunodeficiency [Recovered/Resolved]
  - Paraneoplastic dermatomyositis [Not Recovered/Not Resolved]
  - Pruritus [Unknown]
  - Skin fissures [Unknown]
  - Burning sensation [Unknown]
  - Immunodeficiency [Recovered/Resolved]
  - Metastases to lung [Unknown]
  - Myalgia [Unknown]
  - Pain [Unknown]
  - Pain in extremity [Unknown]
  - Dysstasia [Unknown]
  - Arthralgia [Unknown]
  - Weight increased [Unknown]
  - Acarodermatitis [Unknown]
  - Sensitive skin [Unknown]
  - Tumour marker increased [Unknown]
  - Arthritis [Unknown]
  - Mobility decreased [Recovered/Resolved]
  - Gait disturbance [Recovered/Resolved]
  - Drug interaction [Unknown]
  - Pyrexia [Unknown]
  - Rash [Unknown]
  - Dyspnoea [Unknown]
  - Wound [Recovering/Resolving]
  - Muscular weakness [Recovering/Resolving]
  - Eye infection [Unknown]
  - Eye inflammation [Unknown]
  - Vision blurred [Unknown]
  - Nausea [Recovered/Resolved]
  - Asthenia [Unknown]
  - Fatigue [Recovered/Resolved]

NARRATIVE: CASE EVENT DATE: 20170101
